FAERS Safety Report 7058627-7 (Version None)
Quarter: 2010Q4

REPORT INFORMATION
  Report Type: 
  Country: None (occurrence: None)
  Receive Date: 20101022
  Receipt Date: 20101013
  Transmission Date: 20110411
  Serious: Yes (Hospitalization)
  Sender: FDA-Public Use
  Company Number: B0679508A

PATIENT
  Age: 74 Year
  Sex: Female
  Weight: 108 kg

DRUGS (7)
  1. AVANDIA [Suspect]
     Dosage: 4MG PER DAY
     Route: 048
     Dates: start: 20080101
  2. TAHOR [Concomitant]
     Indication: PROPHYLAXIS
  3. TAREG [Concomitant]
     Indication: HYPERTENSION
  4. LASIX [Concomitant]
     Indication: HYPERTENSION
  5. GALVUS [Concomitant]
     Dates: start: 20100701
  6. FEBUXOSTAT [Concomitant]
  7. OXYGEN THERAPY [Concomitant]

REACTIONS (5)
  - ASPARTATE AMINOTRANSFERASE INCREASED [None]
  - INCREASED APPETITE [None]
  - NEPHROLITHIASIS [None]
  - TACHYARRHYTHMIA [None]
  - WEIGHT INCREASED [None]
